FAERS Safety Report 6140528-X (Version None)
Quarter: 2009Q2

REPORT INFORMATION
  Report Type: 
  Country: None (occurrence: None)
  Receive Date: 20090402
  Receipt Date: 20080724
  Transmission Date: 20091009
  Serious: Yes (Death)
  Sender: FDA-Public Use
  Company Number: US-ASTRAZENECA-2007UW15999

PATIENT
  Age: 45 Year
  Sex: Male

DRUGS (69)
  1. SEROQUEL [Suspect]
     Indication: DEPRESSION
     Dosage: 50 MG
     Route: 048
     Dates: start: 20020101
  2. HYDROCOD [Concomitant]
  3. DILTIAZEM HYDROCHLORIDE [Concomitant]
  4. GLUCOPHAGE [Concomitant]
  5. GEMFIBROZIL [Concomitant]
  6. AMARYL [Concomitant]
  7. METOCLOPRAMIDE [Concomitant]
  8. HYDROCORTISONE [Concomitant]
  9. METOPROLOL [Concomitant]
  10. ISOSORBIDE [Concomitant]
  11. ALPRAZOLAM [Concomitant]
  12. BUPROPION HCL [Concomitant]
  13. LANOXIN [Concomitant]
  14. LANTUS [Concomitant]
  15. ASPIRIN [Concomitant]
  16. LIPITOR [Concomitant]
  17. CEPHALEXIN [Concomitant]
  18. AMBIEN [Concomitant]
  19. FERROUS [Concomitant]
  20. PROMETHAZINE [Concomitant]
  21. NITROSTAT [Concomitant]
  22. AUGMENTIN '125' [Concomitant]
  23. PRILOSEC [Concomitant]
  24. LONOX [Concomitant]
  25. VIVOXX [Concomitant]
  26. HYDROCHLOROTHIAZIDE [Concomitant]
  27. LEVAQUIN [Concomitant]
  28. ALBUTEROL [Concomitant]
  29. TIZANIDINE HCL [Concomitant]
  30. AMOXICILLIN [Concomitant]
  31. NEURONTIN [Concomitant]
  32. HYDROXYZINE [Concomitant]
  33. CIMETIDINE HCL [Concomitant]
  34. PREDNISONE [Concomitant]
  35. ALLEGRA [Concomitant]
  36. NORTRIPTYLINE HCL [Concomitant]
  37. OMEPRAZOLE [Concomitant]
  38. ZITHROMAX [Concomitant]
  39. DICLOXACILLIN [Concomitant]
  40. ZOCOR [Concomitant]
  41. PROTONIX [Concomitant]
  42. NYSTOP [Concomitant]
  43. TRIAMCINOLONE [Concomitant]
  44. METHYLPREDNISOLONE 4MG TAB [Concomitant]
  45. DIFLUCAN [Concomitant]
  46. CLOTRIMAZOLE [Concomitant]
  47. DESONIDE [Concomitant]
  48. IPRATROPIUM BROMIDE [Concomitant]
  49. METFORMIN HCL [Concomitant]
  50. AZMACORT [Concomitant]
  51. COMBIVENT [Concomitant]
  52. NABUMETONE [Concomitant]
  53. AVINZA [Concomitant]
  54. NEXIUM [Concomitant]
  55. SPIRIVA [Concomitant]
  56. SPIRONOLACTONE [Concomitant]
  57. POTASSIUM CHLORIDE [Concomitant]
  58. LISINOPRIL [Concomitant]
  59. FUROSEMIDE [Concomitant]
  60. COREG [Concomitant]
  61. METHADONE [Concomitant]
  62. NOVOLIN [Concomitant]
  63. BYETTA [Concomitant]
  64. MORPHINE [Concomitant]
  65. CLONAZEPAM [Concomitant]
  66. GLIMEPIRIDE [Concomitant]
  67. LEVEMIR [Concomitant]
  68. LORAZEPAM [Concomitant]
  69. LYRICA [Concomitant]

REACTIONS (2)
  - DEATH [None]
  - TYPE 2 DIABETES MELLITUS [None]
